FAERS Safety Report 5851607-6 (Version None)
Quarter: 2008Q3

REPORT INFORMATION
  Report Type: 
  Country: None (occurrence: None)
  Receive Date: 20080820
  Receipt Date: 20080812
  Transmission Date: 20090109
  Serious: Yes (Hospitalization, Other)
  Sender: FDA-Public Use
  Company Number: IL-ABBOTT-08P-082-0470383-00

PATIENT
  Age: 51 Year
  Sex: Female

DRUGS (6)
  1. HUMIRA [Suspect]
     Indication: CROHN'S DISEASE
     Route: 058
  2. COLCHIOINE [Concomitant]
     Indication: FAMILIAL MEDITERRANEAN FEVER
     Route: 048
  3. PREDNISONE TAB [Concomitant]
     Indication: CROHN'S DISEASE
     Route: 048
  4. POTASSIUM CHLORIDE [Concomitant]
     Indication: MINERAL SUPPLEMENTATION
     Route: 048
  5. OMEPRAZOLE SODIUM [Concomitant]
     Indication: GASTRIC PH INCREASED
     Route: 048
  6. OMEPRAZOLE SODIUM [Concomitant]
     Indication: PROPHYLAXIS

REACTIONS (3)
  - AURA [None]
  - EPILEPSY [None]
  - LOSS OF CONSCIOUSNESS [None]
